FAERS Safety Report 14828059 (Version 3)
Quarter: 2018Q2

REPORT INFORMATION
  Report Type: Spontaneous
  Country: JP (occurrence: JP)
  Receive Date: 20180430
  Receipt Date: 20180523
  Transmission Date: 20180711
  Serious: Yes (Hospitalization)
  Sender: FDA-Public Use
  Company Number: JP-IPSEN BIOPHARMACEUTICALS, INC.-2018-06247

PATIENT
  Age: 68 Year
  Sex: Male

DRUGS (3)
  1. SOMATULINE 120MG [Suspect]
     Active Substance: LANREOTIDE ACETATE
     Indication: GLUCAGONOMA
     Dosage: 120 MG
     Route: 058
     Dates: start: 20170921, end: 20180315
  2. SANDOSTATIN LAR DEPOT [Concomitant]
     Active Substance: OCTREOTIDE ACETATE
     Indication: GLUCAGONOMA
     Dates: start: 20170817, end: 20170817
  3. AFINITOR [Concomitant]
     Active Substance: EVEROLIMUS
     Indication: GLUCAGONOMA
     Route: 048
     Dates: start: 20170801, end: 20170831

REACTIONS (2)
  - Hyperglycaemia [Not Recovered/Not Resolved]
  - Glycosylated haemoglobin increased [Not Recovered/Not Resolved]

NARRATIVE: CASE EVENT DATE: 20170921
